FAERS Safety Report 20007595 (Version 1)
Quarter: 2021Q4

REPORT INFORMATION
  Report Type: Spontaneous
  Country: CA (occurrence: CA)
  Receive Date: 20211028
  Receipt Date: 20211028
  Transmission Date: 20220303
  Serious: Yes (Death, Hospitalization)
  Sender: FDA-Public Use
  Company Number: CA-PFIZER INC-2021422800

PATIENT
  Age: 77 Year
  Sex: Female
  Weight: 72 kg

DRUGS (6)
  1. ZIRABEV [Suspect]
     Active Substance: BEVACIZUMAB-BVZR
     Indication: Adenocarcinoma metastatic
     Dosage: 800 MG Q3 WEEKS
     Route: 042
     Dates: start: 20210602
  2. ZIRABEV [Suspect]
     Active Substance: BEVACIZUMAB-BVZR
     Indication: Radiation necrosis
     Dosage: 200 MG Q3 WEEKS
     Route: 042
     Dates: start: 20210602
  3. ZIRABEV [Suspect]
     Active Substance: BEVACIZUMAB-BVZR
     Dosage: 1000 MG Q 3 WEEKLY
     Route: 042
     Dates: start: 20210621
  4. ZIRABEV [Suspect]
     Active Substance: BEVACIZUMAB-BVZR
     Dosage: 1000 MG Q3 WEEKS
     Route: 042
     Dates: start: 20210713
  5. ZIRABEV [Suspect]
     Active Substance: BEVACIZUMAB-BVZR
     Dosage: 1000 MG Q3 WEEKS
     Route: 042
     Dates: start: 20210713
  6. ZIRABEV [Suspect]
     Active Substance: BEVACIZUMAB-BVZR
     Dosage: 1000 MG Q3 WEEKS
     Route: 042
     Dates: start: 20210803, end: 20210803

REACTIONS (6)
  - Cerebrovascular accident [Fatal]
  - Muscle spasms [Unknown]
  - Chills [Unknown]
  - Blood pressure fluctuation [Unknown]
  - Blood pressure diastolic increased [Unknown]
  - Off label use [Unknown]

NARRATIVE: CASE EVENT DATE: 20210101
